FAERS Safety Report 4599807-X (Version None)
Quarter: 2005Q1

REPORT INFORMATION
  Report Type: 
  Country: None (occurrence: None)
  Receive Date: 20050304
  Receipt Date: 20050304
  Transmission Date: 20050727
  Serious: Yes (Other)
  Sender: FDA-Public Use
  Company Number: None

PATIENT
  Age: 38 Year
  Sex: Female
  Weight: 50.8029 kg

DRUGS (1)
  1. AMANTADINE [Suspect]
     Indication: INFLUENZA
     Dosage: 200MG  ONCE A DAY BUCCAL
     Route: 002
     Dates: start: 20050225, end: 20050227

REACTIONS (5)
  - DYSKINESIA [None]
  - MUSCLE SPASMS [None]
  - NERVOUSNESS [None]
  - SPEECH DISORDER [None]
  - TREMOR [None]
